FAERS Safety Report 11158681 (Version 1)
Quarter: 2015Q2

REPORT INFORMATION
  Report Type: Spontaneous
  Country: US (occurrence: None)
  Receive Date: 20150514
  Receipt Date: 20150514
  Transmission Date: 20150821
  Serious: Yes (Death)
  Sender: FDA-Public Use
  Company Number: 2015010041

PATIENT
  Age: 40 Year
  Sex: Female

DRUGS (7)
  1. SKELETAL MUSCLE RELAXANT (SKELETAL MUSCLE RELAXANT) [Suspect]
     Active Substance: UNSPECIFIED INGREDIENT
  2. ESTROGENS CONJUGATED [Suspect]
     Active Substance: ESTROGENS, CONJUGATED
  3. HYDROCODONE W/ACETAMINOPHEN (HYDROCODONE, ACETAMINOPHEN) [Suspect]
     Active Substance: ACETAMINOPHEN\HYDROCODONE BITARTRATE
  4. GABAPENTIN (GABAPENTIN) [Suspect]
     Active Substance: GABAPENTIN
  5. CARBAMAZEPINE (CARBAMAZEPINE) [Suspect]
     Active Substance: CARBAMAZEPINE
  6. ZOLPIDEM (ZOLPIDEM) [Suspect]
     Active Substance: ZOLPIDEM TARTRATE
  7. PHENYTOIN (PHENYTOIN) [Suspect]
     Active Substance: PHENYTOIN

REACTIONS (1)
  - Completed suicide [None]

NARRATIVE: CASE EVENT DATE: 2013
